FAERS Safety Report 14612487 (Version 2)
Quarter: 2018Q1

REPORT INFORMATION
  Report Type: Spontaneous
  Country: US (occurrence: US)
  Receive Date: 20180308
  Receipt Date: 20180308
  Transmission Date: 20180509
  Serious: Yes (Other)
  Sender: FDA-Public Use
  Company Number: US-BAYER-2018-038739

PATIENT
  Age: 58 Year
  Sex: Male

DRUGS (9)
  1. NYSTATIN. [Concomitant]
     Active Substance: NYSTATIN
  2. PRAVASTATIN. [Concomitant]
     Active Substance: PRAVASTATIN
  3. ACETYLSALICYLIC ACID({=100 MG) [Suspect]
     Active Substance: ASPIRIN
  4. MYCOPHENOLATE MOFETIL. [Concomitant]
     Active Substance: MYCOPHENOLATE MOFETIL
  5. TACROLIMUS. [Concomitant]
     Active Substance: TACROLIMUS
     Dosage: 9.8 NG/ML, UNK
  6. SULFAMETHOXAZOLE W/TRIMETHOPRIM [Concomitant]
     Active Substance: SULFAMETHOXAZOLE\TRIMETHOPRIM
  7. VALGANCICLOVIR. [Concomitant]
     Active Substance: VALGANCICLOVIR
  8. INSULIN [Concomitant]
     Active Substance: INSULIN NOS
  9. PREDNISONE. [Concomitant]
     Active Substance: PREDNISONE

REACTIONS (2)
  - Intraventricular haemorrhage [None]
  - Subarachnoid haemorrhage [None]
